FAERS Safety Report 24802599 (Version 1)
Quarter: 2025Q1

REPORT INFORMATION
  Report Type: Report from Study
  Country: US (occurrence: US)
  Receive Date: 20250103
  Receipt Date: 20250103
  Transmission Date: 20250409
  Serious: Yes (Other)
  Sender: JOHNSON AND JOHNSON
  Company Number: US-JNJFOC-20241257115

PATIENT
  Age: 5 Decade
  Sex: Male

DRUGS (4)
  1. SPRAVATO [Suspect]
     Active Substance: ESKETAMINE
     Indication: Depression
     Route: 045
     Dates: start: 20241101, end: 20241108
  2. SPRAVATO [Suspect]
     Active Substance: ESKETAMINE
     Route: 045
     Dates: start: 20241111, end: 20241120
  3. SPRAVATO [Suspect]
     Active Substance: ESKETAMINE
     Route: 045
     Dates: start: 20241125, end: 20241230
  4. SPRAVATO [Suspect]
     Active Substance: ESKETAMINE
     Route: 045
     Dates: start: 20241025, end: 20241030

REACTIONS (5)
  - Hallucination, visual [Recovered/Resolved]
  - Headache [Recovered/Resolved]
  - Gait inability [Not Recovered/Not Resolved]
  - Weight increased [Unknown]
  - Food craving [Unknown]

NARRATIVE: CASE EVENT DATE: 20240101
